FAERS Safety Report 5465867-7 (Version None)
Quarter: 2007Q3

REPORT INFORMATION
  Report Type: 
  Country: None (occurrence: None)
  Receive Date: 20070924
  Receipt Date: 20070920
  Transmission Date: 20080115
  Serious: Yes (Death, Hospitalization)
  Sender: FDA-Public Use
  Company Number: PHHO2003DK12401

PATIENT
  Age: 73 Year
  Sex: Female

DRUGS (4)
  1. TAMOXIFEN CITRATE [Suspect]
     Indication: BREAST CANCER
     Dosage: UNK, UNK
     Route: 048
     Dates: start: 20000727, end: 20020501
  2. MAREVAN [Concomitant]
     Indication: DEEP VEIN THROMBOSIS
     Dates: start: 20020401
  3. CORODIL [Concomitant]
     Indication: ACUTE MYOCARDIAL INFARCTION
     Dates: start: 20020101
  4. FURIX [Concomitant]
     Indication: ACUTE MYOCARDIAL INFARCTION
     Dates: start: 20020101

REACTIONS (17)
  - ABDOMINAL PAIN [None]
  - ANAEMIA [None]
  - BILE DUCT STENOSIS [None]
  - BILE DUCT STENT INSERTION [None]
  - BREAST PAIN [None]
  - CARDIOGENIC SHOCK [None]
  - DEEP VEIN THROMBOSIS [None]
  - DIABETES MELLITUS INADEQUATE CONTROL [None]
  - GASTROINTESTINAL HAEMORRHAGE [None]
  - HAEMATEMESIS [None]
  - HYPOGLYCAEMIA [None]
  - HYPOTENSION [None]
  - HYPOVOLAEMIA [None]
  - ISCHAEMIA [None]
  - MYOCARDIAL ISCHAEMIA [None]
  - OEDEMA PERIPHERAL [None]
  - VOMITING [None]
